FAERS Safety Report 10184139 (Version 1)
Quarter: 2014Q2

REPORT INFORMATION
  Report Type: Spontaneous
  Country: US (occurrence: US)
  Receive Date: 20140520
  Receipt Date: 20140520
  Transmission Date: 20141212
  Serious: Yes (Other)
  Sender: FDA-Public Use
  Company Number: US-TEVA-481551USA

PATIENT
  Age: 48 Year
  Sex: Female
  Weight: 77.18 kg

DRUGS (3)
  1. OTFC [Suspect]
     Indication: PAIN IN JAW
     Route: 048
     Dates: start: 2011
  2. LORTAB [Concomitant]
     Indication: PAIN
  3. VITAMIN [Concomitant]
     Indication: SUPPLEMENTATION THERAPY

REACTIONS (5)
  - Atypical pneumonia [Recovered/Resolved]
  - Migraine [Not Recovered/Not Resolved]
  - Vomiting [Recovered/Resolved]
  - Malaise [Recovered/Resolved]
  - Off label use [Unknown]
